FAERS Safety Report 18453633 (Version 1)
Quarter: 2020Q4

REPORT INFORMATION
  Report Type: Spontaneous
  Country: US (occurrence: US)
  Receive Date: 20201102
  Receipt Date: 20201102
  Transmission Date: 20210114
  Serious: No
  Sender: FDA-Public Use
  Company Number: US-FARMAPROD-202009-1292

PATIENT
  Sex: Female

DRUGS (3)
  1. OXERVATE [Suspect]
     Active Substance: CENEGERMIN-BKBJ
     Indication: NEUROTROPHIC KERATOPATHY
     Route: 047
  2. VALTREX [Concomitant]
     Active Substance: VALACYCLOVIR HYDROCHLORIDE
  3. OXERVATE [Suspect]
     Active Substance: CENEGERMIN-BKBJ
     Indication: ULCERATIVE KERATITIS

REACTIONS (1)
  - Eye pain [Unknown]
